FAERS Safety Report 16567192 (Version 1)
Quarter: 2019Q3

REPORT INFORMATION
  Report Type: Spontaneous
  Country: US (occurrence: US)
  Receive Date: 20190712
  Receipt Date: 20190712
  Transmission Date: 20191004
  Serious: Yes (Hospitalization)
  Sender: FDA-Public Use
  Company Number: US-ANAZAOHEALTH CORPORATION-2070732

PATIENT
  Age: 52 Year
  Sex: Male
  Weight: 87.27 kg

DRUGS (1)
  1. TESTOSTERONE 200 MG PELLETS [Suspect]
     Active Substance: TESTOSTERONE
     Indication: HORMONE REPLACEMENT THERAPY
     Route: 058
     Dates: start: 20180426, end: 20190529

REACTIONS (1)
  - Subcutaneous drug absorption impaired [Recovered/Resolved with Sequelae]

NARRATIVE: CASE EVENT DATE: 20180426
